FAERS Safety Report 7071045-0 (Version None)
Quarter: 2010Q4

REPORT INFORMATION
  Report Type: 
  Country: None (occurrence: None)
  Receive Date: 20101029
  Receipt Date: 20101025
  Transmission Date: 20110411
  Serious: No
  Sender: FDA-Public Use
  Company Number: US-PFIZER INC-2010043628

PATIENT
  Sex: Male

DRUGS (5)
  1. VIAGRA [Suspect]
     Indication: ERECTILE DYSFUNCTION
     Dosage: SPLITTING 100 MG TABLET AS NEEDED
     Route: 048
     Dates: start: 20080501
  2. LEVITRA [Concomitant]
     Indication: ERECTILE DYSFUNCTION
     Dosage: 20 MG, AS NEEDED
     Route: 048
  3. LAMOTRIGINE [Concomitant]
     Indication: AFFECTIVE DISORDER
     Dosage: 100 MG, 2X/DAY
  4. CITALOPRAM [Concomitant]
     Indication: ANXIETY
     Dosage: 60 MG, 1X/DAY
  5. CITALOPRAM [Concomitant]
     Indication: DEPRESSION

REACTIONS (1)
  - DRUG INEFFECTIVE [None]
